FAERS Safety Report 8258330-1 (Version None)
Quarter: 2012Q2

REPORT INFORMATION
  Report Type: 
  Country: None (occurrence: None)
  Receive Date: 20120404
  Receipt Date: 20120320
  Transmission Date: 20120825
  Serious: Yes (Death, Other)
  Sender: FDA-Public Use
  Company Number: AU-CELGENEUS-008-50794-12032447

PATIENT

DRUGS (4)
  1. PANOBINOSTAT [Concomitant]
  2. VIDAZA [Suspect]
     Route: 065
  3. PANOBINOSTAT [Concomitant]
     Dosage: 10.20.30 OR 40 MG
     Route: 065
  4. VIDAZA [Suspect]

REACTIONS (20)
  - DEATH [None]
  - HYPERGLYCAEMIA [None]
  - HYPERBILIRUBINAEMIA [None]
  - FATIGUE [None]
  - NAUSEA [None]
  - DYSPNOEA [None]
  - ATRIAL FIBRILLATION [None]
  - INJECTION SITE ERYTHEMA [None]
  - HYPONATRAEMIA [None]
  - PYREXIA [None]
  - DIARRHOEA [None]
  - INFECTION [None]
  - SYNCOPE [None]
  - DECREASED APPETITE [None]
  - DIZZINESS [None]
  - DISEASE PROGRESSION [None]
  - SOMNOLENCE [None]
  - HAEMATOTOXICITY [None]
  - OEDEMA PERIPHERAL [None]
  - INJECTION SITE PAIN [None]
